FAERS Safety Report 13547246 (Version 8)
Quarter: 2018Q3

REPORT INFORMATION
  Report Type: Report from Study
  Country: US (occurrence: US)
  Receive Date: 20170515
  Receipt Date: 20180830
  Transmission Date: 20181010
  Serious: Yes (Death, Life-Threatening, Hospitalization, Other)
  Sender: FDA-Public Use
  Company Number: US-ACTELION-A-NJ2016-136608

PATIENT
  Age: 34 Year
  Sex: Male
  Weight: 140.59 kg

DRUGS (53)
  1. FENTANYL. [Concomitant]
     Active Substance: FENTANYL
     Dosage: UNK
     Dates: start: 20170111
  2. ONDANSETRON [Concomitant]
     Active Substance: ONDANSETRON
     Dosage: UNK
     Dates: start: 20170111
  3. POLYETHYLENE GLYCOL [Concomitant]
     Active Substance: POLYETHYLENE GLYCOLS
     Dosage: UNK
     Dates: start: 20170111
  4. ASCORBIC ACID W/GLUCOSE [Concomitant]
     Dosage: UNK
     Dates: start: 20170414
  5. SENNA [Concomitant]
     Active Substance: SENNA LEAF\SENNOSIDES\SENNOSIDES A AND B
     Dosage: UNK
     Dates: start: 20170414
  6. TRAMADOL. [Concomitant]
     Active Substance: TRAMADOL
     Dosage: UNK
     Dates: start: 20170414
  7. MUPIROCIN. [Concomitant]
     Active Substance: MUPIROCIN
     Dosage: UNK
     Dates: start: 20170111
  8. SERTRALINE [Concomitant]
     Active Substance: SERTRALINE HYDROCHLORIDE
     Dosage: UNK
     Dates: start: 20170111
  9. AMBRISENTAN [Concomitant]
     Active Substance: AMBRISENTAN
     Dosage: UNK
     Dates: start: 20170414
  10. DOBUTAMINE W/GLUCOSE [Concomitant]
     Dosage: UNK
     Dates: start: 20170414
  11. PANTOPRAZOLE [Concomitant]
     Active Substance: PANTOPRAZOLE
     Dosage: UNK
     Dates: start: 20170414
  12. SODIUM CHLORIDE. [Concomitant]
     Active Substance: SODIUM CHLORIDE
     Dosage: UNK
     Dates: start: 20170414
  13. OPSUMIT [Suspect]
     Active Substance: MACITENTAN
     Indication: PULMONARY HYPERTENSION
     Dosage: 10 MG, QD
     Route: 048
     Dates: start: 20161102, end: 20170414
  14. OPSUMIT [Suspect]
     Active Substance: MACITENTAN
     Dosage: 10 MG, QD
     Route: 048
     Dates: start: 20170421
  15. LASIX [Suspect]
     Active Substance: FUROSEMIDE
     Dosage: UNK
     Route: 048
     Dates: start: 20170414
  16. CETIRIZINE [Concomitant]
     Active Substance: CETIRIZINE HYDROCHLORIDE
     Dosage: UNK
     Dates: start: 20170111
  17. TRIAZOLAM. [Concomitant]
     Active Substance: TRIAZOLAM
     Dosage: UNK
     Dates: start: 20170111
  18. ACETAMINOPHEN. [Concomitant]
     Active Substance: ACETAMINOPHEN
     Dosage: UNK
     Dates: start: 20170414
  19. ESMOLOL [Concomitant]
     Active Substance: ESMOLOL HYDROCHLORIDE
     Dosage: UNK
     Dates: start: 20170414
  20. PROCHLORPERAZINE. [Concomitant]
     Active Substance: PROCHLORPERAZINE
     Dosage: UNK
     Dates: start: 20170414
  21. PROPOFOL. [Concomitant]
     Active Substance: PROPOFOL
     Dosage: UNK
     Dates: start: 20170414
  22. ALBUTEROL. [Concomitant]
     Active Substance: ALBUTEROL
     Dosage: UNK
     Dates: start: 20170414
  23. AMPICILLIN [Concomitant]
     Active Substance: AMPICILLIN
     Dosage: UNK
     Dates: start: 20170414
  24. CHLORHEXIDINE [Concomitant]
     Active Substance: CHLORHEXIDINE
     Dosage: UNK
     Dates: start: 20170414
  25. DEXTROSE IN WATER [Concomitant]
     Active Substance: DEXTROSE\WATER
     Dosage: UNK
     Dates: start: 20170714
  26. EPINEPHRINE. [Concomitant]
     Active Substance: EPINEPHRINE
     Dosage: UNK
     Dates: start: 20170414
  27. HEPARIN (IODISED) SODIUM [Concomitant]
     Dosage: UNK
     Route: 042
     Dates: start: 20170414
  28. VELETRI [Suspect]
     Active Substance: EPOPROSTENOL
     Indication: PULMONARY HYPERTENSION
     Dosage: 36 NG/KG, PER MIN
     Route: 042
     Dates: start: 20140825
  29. FERROUS SULFATE. [Concomitant]
     Active Substance: FERROUS SULFATE
     Dosage: UNK
     Dates: start: 20170111
  30. MORPHINE [Concomitant]
     Active Substance: MORPHINE
     Dosage: UNK
     Dates: start: 20170111
  31. OXYGEN. [Concomitant]
     Active Substance: OXYGEN
     Dosage: UNK
     Dates: start: 20170111
  32. PROMETHAZINE [Concomitant]
     Active Substance: PROMETHAZINE\PROMETHAZINE HYDROCHLORIDE
     Dosage: UNK
     Dates: start: 20170111
  33. CEFTRIAXONE. [Concomitant]
     Active Substance: CEFTRIAXONE
     Dosage: UNK
     Dates: start: 20170414
  34. GLUCAGON. [Concomitant]
     Active Substance: GLUCAGON
     Dosage: UNK
     Dates: start: 20170414
  35. NOREPINEPHRINE. [Concomitant]
     Active Substance: NOREPINEPHRINE
     Dosage: UNK
     Dates: start: 20170414
  36. POTASSIUM CHLORIDE. [Concomitant]
     Active Substance: POTASSIUM CHLORIDE
     Dosage: UNK
     Dates: start: 20170414
  37. DIPHENHYDRAMINE. [Concomitant]
     Active Substance: DIPHENHYDRAMINE
     Dosage: UNK
     Dates: start: 20170111
  38. FUROSEMIDE. [Concomitant]
     Active Substance: FUROSEMIDE
     Dosage: UNK
     Dates: start: 20170111
  39. LAMOTRIGINE. [Concomitant]
     Active Substance: LAMOTRIGINE
     Dosage: UNK
     Dates: start: 20170111
  40. OMEPRAZOLE. [Concomitant]
     Active Substance: OMEPRAZOLE
     Dosage: UNK
     Dates: start: 20170111
  41. PREGABALIN. [Concomitant]
     Active Substance: PREGABALIN
     Dosage: UNK
     Dates: start: 20170111
  42. ENOXAPARIN [Concomitant]
     Active Substance: ENOXAPARIN
     Dosage: UNK
     Dates: start: 20170414
  43. PHOSPHATE [Concomitant]
     Active Substance: UNSPECIFIED INGREDIENT
     Dosage: UNK
     Dates: start: 20170414
  44. TEMAZEPAM. [Concomitant]
     Active Substance: TEMAZEPAM
     Dosage: UNK
     Dates: start: 20170414
  45. LASIX [Suspect]
     Active Substance: FUROSEMIDE
     Indication: PRODUCT USED FOR UNKNOWN INDICATION
     Dosage: UNK
     Route: 042
  46. CARIPRAZINE [Concomitant]
     Active Substance: CARIPRAZINE
     Dosage: UNK
     Dates: start: 20170111
  47. OXYMETAZOLINE [Concomitant]
     Active Substance: OXYMETAZOLINE
     Dosage: UNK
     Dates: start: 20170111
  48. SALINE [Concomitant]
     Active Substance: SODIUM CHLORIDE
     Dosage: UNK
     Dates: start: 20170111
  49. AZITHROMYCIN +PHARMA [Concomitant]
     Dosage: UNK
     Dates: start: 20170414
  50. LIDOCAINE. [Concomitant]
     Active Substance: LIDOCAINE
     Dosage: UNK
     Dates: start: 20170414
  51. TRAZODONE [Concomitant]
     Active Substance: TRAZODONE HYDROCHLORIDE
     Dosage: UNK
     Dates: start: 20170414
  52. DEXMEDETOMIDINE. [Concomitant]
     Active Substance: DEXMEDETOMIDINE
     Dosage: UNK
     Dates: start: 20170414
  53. MAGNESIUM [Concomitant]
     Active Substance: MAGNESIUM
     Dosage: UNK
     Dates: start: 20170414

REACTIONS (33)
  - Dyspnoea exertional [Recovered/Resolved]
  - Fluid retention [Recovered/Resolved]
  - Hypercapnia [Recovered/Resolved]
  - Pneumonia aspiration [Unknown]
  - Brain natriuretic peptide increased [Recovered/Resolved]
  - Chest discomfort [Unknown]
  - Hypoaesthesia [Unknown]
  - Catheter management [Recovered/Resolved]
  - Complication associated with device [Unknown]
  - Pallor [Recovering/Resolving]
  - Bone pain [Unknown]
  - Chest pain [Recovered/Resolved]
  - Device issue [Recovered/Resolved]
  - No adverse event [Unknown]
  - Right ventricular failure [Recovered/Resolved]
  - Dyspnoea [Recovered/Resolved]
  - Feeling abnormal [Recovered/Resolved]
  - Cardiac failure [Recovered/Resolved]
  - Flushing [Recovered/Resolved]
  - Hypoxia [Recovered/Resolved]
  - Night sweats [Unknown]
  - Pulmonary hypertension [Not Recovered/Not Resolved]
  - Device damage [Recovered/Resolved]
  - Left ventricular end-diastolic pressure increased [Recovered/Resolved]
  - Pain in jaw [Unknown]
  - Feeling of body temperature change [Unknown]
  - Device leakage [Recovered/Resolved]
  - Leukocytosis [Unknown]
  - Death [Fatal]
  - Fluid overload [Recovered/Resolved]
  - Weight increased [Recovered/Resolved]
  - Dizziness [Unknown]
  - Mental status changes [Recovered/Resolved]

NARRATIVE: CASE EVENT DATE: 20170111
